FAERS Safety Report 5808774-X (Version None)
Quarter: 2008Q3

REPORT INFORMATION
  Report Type: 
  Country: None (occurrence: None)
  Receive Date: 20080710
  Receipt Date: 20080710
  Transmission Date: 20090109
  Serious: Yes (Hospitalization)
  Sender: FDA-Public Use
  Company Number: None

PATIENT
  Sex: Female
  Weight: 57 kg

DRUGS (2)
  1. CARBOPLATIN [Suspect]
     Dosage: 751.2 MG
     Dates: start: 20080626
  2. TAXOTERE [Suspect]
     Dosage: 119 MG
     Dates: start: 20080626

REACTIONS (17)
  - ABDOMINAL PAIN [None]
  - CONSTIPATION [None]
  - DIARRHOEA [None]
  - FATIGUE [None]
  - FLATULENCE [None]
  - GASTROOESOPHAGEAL REFLUX DISEASE [None]
  - HAEMATOCRIT DECREASED [None]
  - HAEMOGLOBIN DECREASED [None]
  - HYPONATRAEMIA [None]
  - HYPOVOLAEMIA [None]
  - MALAISE [None]
  - MUCOSAL INFLAMMATION [None]
  - NEUTROPHIL COUNT DECREASED [None]
  - PYREXIA [None]
  - TACHYCARDIA [None]
  - URINE ELECTROLYTES DECREASED [None]
  - WHITE BLOOD CELL COUNT DECREASED [None]
